FAERS Safety Report 6439194-5 (Version None)
Quarter: 2009Q4

REPORT INFORMATION
  Report Type: 
  Country: None (occurrence: None)
  Receive Date: 20091113
  Receipt Date: 20091105
  Transmission Date: 20100525
  Serious: Yes (Hospitalization)
  Sender: FDA-Public Use
  Company Number: FR-PFIZER INC-2009293405

PATIENT
  Age: 74 Year
  Sex: Female

DRUGS (3)
  1. CAMPTOSAR [Suspect]
     Indication: COLON CANCER
     Dosage: 280 MG, CYCLIC
     Route: 042
     Dates: start: 20090916, end: 20090916
  2. FLUOROURACIL [Suspect]
     Indication: COLON CANCER
     Dosage: 625 MG, CYCLIC
     Route: 040
     Dates: start: 20090916, end: 20090916
  3. FLUOROURACIL [Suspect]
     Dosage: 1850 MG, CYCLIC
     Route: 041
     Dates: start: 20090916, end: 20090919

REACTIONS (2)
  - RENAL FAILURE ACUTE [None]
  - RHABDOMYOLYSIS [None]
